FAERS Safety Report 24244123 (Version 1)
Quarter: 2024Q3

REPORT INFORMATION
  Report Type: Spontaneous
  Country: DK (occurrence: DK)
  Receive Date: 20240823
  Receipt Date: 20240823
  Transmission Date: 20241016
  Serious: Yes (Death, Hospitalization, Other)
  Sender: BAYER
  Company Number: None

PATIENT
  Age: 17 Year
  Sex: Male

DRUGS (11)
  1. NEXAVAR [Suspect]
     Active Substance: SORAFENIB
     Indication: Hepatocellular carcinoma
     Dosage: 200 MG, QD
     Route: 048
  2. NEXAVAR [Suspect]
     Active Substance: SORAFENIB
     Indication: Hepatocellular carcinoma
     Dosage: 400 MG, BID
     Route: 048
  3. CISPLATIN [Suspect]
     Active Substance: CISPLATIN
     Indication: Hepatocellular carcinoma
     Dosage: 70 MG/M2, Q3WK (GIVEN AS FIVE SERIES OF COMBINATION THERAPY (GCT THEREPY) GIVEN ON DAY 1 OF A 3-WEEK
  4. CISPLATIN [Suspect]
     Active Substance: CISPLATIN
     Indication: Hepatocellular carcinoma
     Dosage: 100 MG/M2, Q3WK
  5. TAXOL [Suspect]
     Active Substance: PACLITAXEL
     Indication: Hepatocellular carcinoma
     Dosage: 175 MG/M2, Q3WK (175 MG/M2 ON DAY 1 IN A 3-WEEK CYCLE)
  6. ERLOTINIB [Suspect]
     Active Substance: ERLOTINIB
     Indication: Hepatocellular carcinoma
     Dosage: 100 MG, QD
     Route: 048
  7. GEMCITABINE [Suspect]
     Active Substance: GEMCITABINE
     Indication: Hepatocellular carcinoma
     Dosage: 1000 MG/M2, Q2WK
  8. PEGFILGRASTIM [Suspect]
     Active Substance: PEGFILGRASTIM
     Indication: Hepatocellular carcinoma
     Dosage: 4 MG, QD (4 MG, CYCLIC, ON DAY 2 OF EACH CYCLE)
     Route: 058
  9. PEGFILGRASTIM [Suspect]
     Active Substance: PEGFILGRASTIM
     Indication: Supportive care
  10. DOCETAXEL [Suspect]
     Active Substance: DOCETAXEL\DOCETAXEL ANHYDROUS
     Indication: Hepatocellular carcinoma
     Dosage: 175 MG/M2, Q3WK (GIVEN AS FIVE SERIES OF COMBINATION THERAPY (GCT THEREPY) GIVEN ON DAY 1 OF A 3-WEE
  11. OXALIPLATIN [Suspect]
     Active Substance: OXALIPLATIN
     Indication: Hepatocellular carcinoma
     Dosage: 85 MG/M2, Q2WK

REACTIONS (15)
  - Hepatocellular carcinoma [Fatal]
  - Paraesthesia [Recovered/Resolved]
  - General physical health deterioration [Unknown]
  - Pruritus [Unknown]
  - Rash [Unknown]
  - Diarrhoea [Unknown]
  - Decreased appetite [Recovered/Resolved]
  - Alopecia [Recovered/Resolved]
  - Anaemia [Recovered/Resolved]
  - Tinnitus [Recovered/Resolved]
  - Neutropenia [Recovered/Resolved]
  - Neutropenia [Unknown]
  - Hepatic enzyme increased [Unknown]
  - Vomiting [Recovered/Resolved]
  - Drug ineffective [Unknown]
